FAERS Safety Report 26214278 (Version 1)
Quarter: 2025Q4

REPORT INFORMATION
  Report Type: Report from Study
  Country: PE (occurrence: PE)
  Receive Date: 20251230
  Receipt Date: 20251230
  Transmission Date: 20260118
  Serious: Yes (Hospitalization, Other)
  Sender: ROCHE
  Company Number: PE-ROCHE-10000394494

PATIENT
  Age: 12 Year
  Sex: Female
  Weight: 46.3 kg

DRUGS (27)
  1. ACTEMRA [Suspect]
     Active Substance: TOCILIZUMAB
     Indication: Juvenile idiopathic arthritis
     Route: 042
  2. ACTEMRA [Suspect]
     Active Substance: TOCILIZUMAB
     Route: 042
  3. ACTEMRA [Suspect]
     Active Substance: TOCILIZUMAB
     Route: 042
  4. POLYACRYLIC ACID [Concomitant]
     Dosage: 0.2% OPHTHALMIC GEL?ACRYLAM 0.2% COLLAPSIBLE TUBE X 10G
  5. FOLIC ACID [Concomitant]
     Active Substance: FOLIC ACID
     Indication: Juvenile idiopathic arthritis
     Dosage: 0.5MG TABLET
  6. SYSTANE ULTRA [Concomitant]
     Active Substance: POLYETHYLENE GLYCOL 400\PROPYLENE GLYCOL
     Dosage: POLYETHYLENE GLYCOL 0.4% + PROPYLENE GLYCOL 0.3%?MACROGOL 400
  7. SODIUM HYALURONIC ACID [Concomitant]
     Dosage: 0.4%
  8. LEVOCETIRIZINE [Concomitant]
     Active Substance: LEVOCETIRIZINE
     Dosage: 5 MG TAB, 1 TABLET EVERY 12 HOURS ORALLY FOR 6 DAYS
     Route: 048
  9. ACETYLCYSTEINE [Concomitant]
     Active Substance: ACETYLCYSTEINE
     Dosage: 200 MG - SACHET
  10. ACETAMINOPHEN [Concomitant]
     Active Substance: ACETAMINOPHEN
     Dosage: 500MG TAB
  11. METAMIZOLE [Concomitant]
     Active Substance: METAMIZOLE
     Dosage: 500MG TAB
  12. METAMIZOLE [Concomitant]
     Active Substance: METAMIZOLE
     Dosage: METAMIZOLE 1000 MG INTRAMUSCULARLY STATIM (IMMEDIATELY AND WITHOUT?DE
     Route: 030
  13. AMOXICILLIN\CLAVULANIC ACID [Concomitant]
     Active Substance: AMOXICILLIN\CLAVULANIC ACID
     Dosage: 875/125 MG, TABLETS
  14. Neomycin + Polymyxin + Fluorocortisone + Lidocaine [Concomitant]
  15. IBUPROFEN [Concomitant]
     Active Substance: IBUPROFEN
     Dosage: 400 MG TABLET
  16. OMEGA 3 [Concomitant]
     Active Substance: CAPSAICIN
     Indication: Juvenile idiopathic arthritis
     Dosage: 400 MG TABLET
  17. POLYETHYLENE GLYCOL 0.4% + PROPYLENE GLYCOL 0.3% [Concomitant]
  18. DEXTROSE [Concomitant]
     Active Substance: DEXTROSE MONOHYDRATE
     Dosage: DEXTROSE 5%
  19. HYDROCORTISONE [Concomitant]
     Active Substance: HYDROCORTISONE
     Dosage: 80MG IV EVERY 8 HOURS
     Route: 042
  20. HYDROCORTISONE [Concomitant]
     Active Substance: HYDROCORTISONE
     Dosage: 80MG IV EVERY 8 HOURS
     Route: 042
  21. CHLORPHENIRAMINE [Concomitant]
     Active Substance: CHLORPHENIRAMINE
     Dosage: 10MG IV EVERY 12 HOURS
     Route: 042
  22. CHLORPHENIRAMINE [Concomitant]
     Active Substance: CHLORPHENIRAMINE
     Dosage: 10MG IV EVERY 12 HOURS
     Route: 042
  23. OMEPRAZOLE [Concomitant]
     Active Substance: OMEPRAZOLE
     Route: 042
  24. EPINEPHRINE [Concomitant]
     Active Substance: EPINEPHRINE
     Route: 058
  25. RANITIDINE [Concomitant]
     Active Substance: RANITIDINE
     Dosage: 1/2 TABLET EVERY 12 HOURS ORALLY FOR 6 DAYS
     Route: 042
  26. Dexamethasone (Dexafar) [Concomitant]
     Dosage: 1 TABLET EVERY 12 HOURS ORALLY FOR 3 DAYS
     Route: 048
  27. Dexamethasone (Dexafar) [Concomitant]
     Dosage: 8 MG/2 ML INFUSION

REACTIONS (29)
  - Urticaria [Recovering/Resolving]
  - Dehydration [Recovering/Resolving]
  - Haematocrit increased [Unknown]
  - Red blood cell count increased [Unknown]
  - White blood cell count decreased [Unknown]
  - Neutrophil count decreased [Unknown]
  - Eosinophil count increased [Unknown]
  - Lymphocyte count increased [Unknown]
  - Red blood cells urine positive [Unknown]
  - Bacterial infection [Unknown]
  - Nasopharyngitis [Unknown]
  - Rhinitis [Unknown]
  - Tracheitis [Unknown]
  - Influenza [Unknown]
  - Respiratory disorder [Unknown]
  - Ear pain [Unknown]
  - Otitis media [Unknown]
  - Otitis externa [Unknown]
  - Neutropenia [Unknown]
  - Specific gravity urine increased [Unknown]
  - Gamma-glutamyltransferase decreased [Unknown]
  - Monocyte count decreased [Unknown]
  - Blood bilirubin decreased [Unknown]
  - Blood bilirubin unconjugated decreased [Unknown]
  - Mean cell haemoglobin concentration increased [Unknown]
  - Globulins decreased [Unknown]
  - Blood alkaline phosphatase increased [Unknown]
  - Monocyte count increased [Unknown]
  - Blood creatinine decreased [Unknown]

NARRATIVE: CASE EVENT DATE: 20230217
